FAERS Safety Report 6035844-6 (Version None)
Quarter: 2009Q1

REPORT INFORMATION
  Report Type: 
  Country: None (occurrence: None)
  Receive Date: 20090113
  Receipt Date: 20090113
  Transmission Date: 20090719
  Serious: Yes (Hospitalization)
  Sender: FDA-Public Use
  Company Number: A0763127A

PATIENT
  Age: 22 Year
  Sex: Female
  Weight: 71 kg

DRUGS (2)
  1. ALLI [Suspect]
     Route: 048
     Dates: start: 20070801, end: 20080703
  2. MULTI-VITAMIN [Concomitant]

REACTIONS (3)
  - ABDOMINAL DISTENSION [None]
  - CHOLELITHIASIS [None]
  - PRODUCT QUALITY ISSUE [None]
